FAERS Safety Report 9882107 (Version 1)
Quarter: 2014Q1

REPORT INFORMATION
  Report Type: Spontaneous
  Country: NL (occurrence: NL)
  Receive Date: 20140207
  Receipt Date: 20140207
  Transmission Date: 20141002
  Serious: Yes (Other)
  Sender: FDA-Public Use
  Company Number: PHHY2014NL014754

PATIENT
  Sex: Female

DRUGS (3)
  1. CICLOSPORIN [Suspect]
     Route: 064
  2. PREDNISOLONE [Suspect]
     Route: 064
  3. AZATHIOPRINE [Suspect]
     Route: 064

REACTIONS (6)
  - Apnoea [Unknown]
  - Lymphocyte count decreased [Unknown]
  - CD4/CD8 ratio increased [Unknown]
  - Low birth weight baby [Unknown]
  - Nasopharyngitis [Unknown]
  - Foetal exposure during pregnancy [Unknown]
